FAERS Safety Report 24084905 (Version 2)
Quarter: 2024Q3

REPORT INFORMATION
  Report Type: Spontaneous
  Country: GB (occurrence: GB)
  Receive Date: 20240712
  Receipt Date: 20240716
  Transmission Date: 20241017
  Serious: Yes (Death, Life-Threatening, Hospitalization, Other)
  Sender: PFIZER
  Company Number: GB-MLMSERVICE-20240701-PI118124-00214-1

PATIENT
  Age: 51 Year
  Sex: Female

DRUGS (5)
  1. CYTARABINE [Suspect]
     Active Substance: CYTARABINE
     Indication: Acute myeloid leukaemia
     Dosage: UNK
     Dates: start: 202310
  2. MEROPENEM [Suspect]
     Active Substance: MEROPENEM
     Indication: Enterobacter infection
     Dosage: TDS
  3. MEROPENEM [Suspect]
     Active Substance: MEROPENEM
     Indication: Enterobacter bacteraemia
  4. IDARUBICIN HYDROCHLORIDE [Suspect]
     Active Substance: IDARUBICIN HYDROCHLORIDE
     Indication: Acute myeloid leukaemia
     Dosage: UNK
     Dates: start: 202310
  5. FLUDARABINE [Suspect]
     Active Substance: FLUDARABINE PHOSPHATE
     Indication: Acute myeloid leukaemia
     Dosage: UNK
     Dates: start: 202310

REACTIONS (15)
  - Emphysema [Fatal]
  - Pneumonia [Fatal]
  - Pulmonary haemorrhage [Fatal]
  - Tracheal injury [Fatal]
  - Pulmonary mass [Fatal]
  - Mediastinitis [Fatal]
  - Fungal infection [Fatal]
  - Neutropenic sepsis [Unknown]
  - Enterobacter bacteraemia [Unknown]
  - Enterococcal bacteraemia [Unknown]
  - Staphylococcal bacteraemia [Unknown]
  - Tracheal ulcer [Unknown]
  - Cardiac arrest [Unknown]
  - Enterobacter infection [Unknown]
  - Arterial perforation [Unknown]

NARRATIVE: CASE EVENT DATE: 20230101
